FAERS Safety Report 4404835-0 (Version None)
Quarter: 2004Q2

REPORT INFORMATION
  Report Type: 
  Country: None (occurrence: None)
  Receive Date: 20040621
  Receipt Date: 20040409
  Transmission Date: 20050107
  Serious: No
  Sender: FDA-Public Use
  Company Number: A-US2004-05885

PATIENT
  Age: 18 Month
  Sex: Female
  Weight: 11.8 kg

DRUGS (1)
  1. TRACLEER [Suspect]
     Dosage: 62.5 MG, 2 TABLETS, ORAL
     Route: 048
     Dates: start: 20040409, end: 20040409

REACTIONS (1)
  - ACCIDENTAL EXPOSURE [None]
